FAERS Safety Report 13565446 (Version 1)
Quarter: 2017Q2

REPORT INFORMATION
  Report Type: Spontaneous
  Country: IT (occurrence: IT)
  Receive Date: 20170519
  Receipt Date: 20170519
  Transmission Date: 20170830
  Serious: Yes (Hospitalization)
  Sender: FDA-Public Use
  Company Number: IT-ABBVIE-17P-083-1982199-00

PATIENT
  Age: 47 Year
  Sex: Male

DRUGS (3)
  1. OLANZAPINE (OLANZAPINE) [Interacting]
     Active Substance: OLANZAPINE
     Indication: DRUG USE DISORDER
     Route: 048
     Dates: start: 20170424, end: 20170424
  2. RIVOTRIL [Interacting]
     Active Substance: CLONAZEPAM
     Indication: DRUG USE DISORDER
     Route: 048
     Dates: start: 20170424, end: 20170424
  3. DEPAKIN [Suspect]
     Active Substance: VALPROATE SODIUM
     Indication: DRUG USE DISORDER
     Route: 048
     Dates: start: 20170424, end: 20170424

REACTIONS (3)
  - Sopor [Unknown]
  - Drug interaction [Unknown]
  - Drug use disorder [Unknown]

NARRATIVE: CASE EVENT DATE: 20170424
